FAERS Safety Report 14482597 (Version 2)
Quarter: 2018Q1

REPORT INFORMATION
  Report Type: Report from Study
  Country: NL (occurrence: NL)
  Receive Date: 20180203
  Receipt Date: 20180223
  Transmission Date: 20180509
  Serious: Yes (Death, Hospitalization, Other)
  Sender: FDA-Public Use
  Company Number: NL-AMGEN-NLDSL2018015060

PATIENT
  Age: 82 Year
  Sex: Male

DRUGS (2)
  1. PLAVIX [Concomitant]
     Active Substance: CLOPIDOGREL BISULFATE
     Indication: ATRIAL FIBRILLATION
     Dosage: 75 MG, UNK
     Dates: end: 20180119
  2. ARANESP [Suspect]
     Active Substance: DARBEPOETIN ALFA
     Indication: NEPHROGENIC ANAEMIA
     Dosage: 40 MUG, (INJVLST 100MCG/ML 0.4ML) Q2WK
     Route: 058
     Dates: start: 20170601, end: 20180108

REACTIONS (3)
  - Urosepsis [Unknown]
  - Pleural effusion [Fatal]
  - Delirium [Unknown]

NARRATIVE: CASE EVENT DATE: 201801
